FAERS Safety Report 9133531 (Version 2)
Quarter: 2013Q1

REPORT INFORMATION
  Report Type: Report from Study
  Country: DE (occurrence: DE)
  Receive Date: 20130301
  Receipt Date: 20130307
  Transmission Date: 20140127
  Serious: Yes (Hospitalization, Other)
  Sender: FDA-Public Use
  Company Number: DE-ABBOTT-13P-062-1054856-00

PATIENT
  Age: 49 Year
  Sex: Male

DRUGS (2)
  1. HUMIRA [Suspect]
     Indication: PSORIATIC ARTHROPATHY
     Route: 050
     Dates: start: 20120203, end: 20120614
  2. ANALGETIC DRUG [Concomitant]
     Indication: PSORIATIC ARTHROPATHY
     Dosage: UNK.

REACTIONS (3)
  - Blood test abnormal [Not Recovered/Not Resolved]
  - Arthropathy [Unknown]
  - Leukaemia [Unknown]
